FAERS Safety Report 17632091 (Version 1)
Quarter: 2020Q2

REPORT INFORMATION
  Report Type: Spontaneous
  Country: US (occurrence: US)
  Receive Date: 20200406
  Receipt Date: 20200406
  Transmission Date: 20200713
  Serious: No
  Sender: FDA-Public Use
  Company Number: US-FERRINGPH-2019FE08820

PATIENT
  Sex: Male
  Weight: 79.37 kg

DRUGS (1)
  1. NOCDURNA [Suspect]
     Active Substance: DESMOPRESSIN ACETATE
     Indication: NOCTURIA
     Dosage: UNK
     Route: 060
     Dates: start: 201912, end: 201912

REACTIONS (2)
  - Drug ineffective [Unknown]
  - Cardiac flutter [Unknown]
